FAERS Safety Report 21116940 (Version 2)
Quarter: 2022Q3

REPORT INFORMATION
  Report Type: Report from Study
  Country: US (occurrence: US)
  Receive Date: 20220722
  Receipt Date: 20220926
  Transmission Date: 20221027
  Serious: Yes (Other)
  Sender: FDA-Public Use
  Company Number: US-NOVARTISPH-NVSC2022US162301

PATIENT
  Sex: Female

DRUGS (1)
  1. KESIMPTA [Suspect]
     Active Substance: OFATUMUMAB
     Indication: Multiple sclerosis
     Dosage: UNK
     Route: 065

REACTIONS (10)
  - Cerebrovascular accident [Unknown]
  - Cerebral haemorrhage [Unknown]
  - Brain neoplasm [Unknown]
  - Transient ischaemic attack [Unknown]
  - Nervous system disorder [Unknown]
  - Arteriosclerosis [Unknown]
  - COVID-19 [Unknown]
  - Aphasia [Unknown]
  - Central nervous system lesion [Unknown]
  - Drug ineffective [Unknown]
